FAERS Safety Report 5304638-9 (Version None)
Quarter: 2007Q2

REPORT INFORMATION
  Report Type: 
  Country: None (occurrence: None)
  Receive Date: 20070423
  Receipt Date: 20070413
  Transmission Date: 20071010
  Serious: Yes (Other)
  Sender: FDA-Public Use
  Company Number: MY-GLAXOSMITHKLINE-B0467375A

PATIENT
  Age: 40 Year
  Sex: Female

DRUGS (1)
  1. LAMIVUDINE [Suspect]
     Indication: HIV TEST POSITIVE
     Route: 048

REACTIONS (4)
  - ANGIOEDEMA [None]
  - HEPATIC STEATOSIS [None]
  - HEPATOMEGALY [None]
  - LACTIC ACIDOSIS [None]
